FAERS Safety Report 7276454-2 (Version None)
Quarter: 2011Q1

REPORT INFORMATION
  Report Type: 
  Country: None (occurrence: None)
  Receive Date: 20110204
  Receipt Date: 20110125
  Transmission Date: 20110831
  Serious: Yes (Other)
  Sender: FDA-Public Use
  Company Number: US-WATSON-2011-00035

PATIENT
  Sex: Female
  Weight: 70.748 kg

DRUGS (7)
  1. LASIX [Concomitant]
     Indication: OEDEMA
     Dosage: 1 TABLET, DAILY PRN
     Route: 048
     Dates: start: 20101129
  2. FENTANYL-100 [Suspect]
     Indication: PAIN
     Dosage: 1 PATCH, SINGLE
     Route: 062
     Dates: start: 20101223, end: 20101224
  3. TOPAMAX [Concomitant]
     Indication: CONVULSION
     Dosage: 1 AND 1/2 TABLETS, BID
     Route: 048
     Dates: start: 20080101
  4. CLONAZEPAM [Concomitant]
     Indication: CONVULSION
     Dosage: 1 TABLET IN THE MORNING AND 2 TABLETS IN THE EVENING
     Route: 048
     Dates: start: 20080101
  5. VICODIN HP [Concomitant]
     Indication: PAIN
     Dosage: 1 TABLET, Q 6 HOURS
     Route: 048
     Dates: start: 20080101
  6. KEPPRA [Concomitant]
     Indication: CONVULSION
     Dosage: 1 AND 1/2 TABLETS, BID
     Route: 048
     Dates: start: 20100901
  7. REGLAN [Concomitant]
     Indication: NAUSEA
     Dosage: 1 TABLET, DAILY PRN
     Route: 048
     Dates: start: 20080101

REACTIONS (9)
  - MEMORY IMPAIRMENT [None]
  - APPLICATION SITE EXFOLIATION [None]
  - CONVULSION [None]
  - HYPERHIDROSIS [None]
  - LOSS OF CONSCIOUSNESS [None]
  - TREMOR [None]
  - NAUSEA [None]
  - FALL [None]
  - DYSSTASIA [None]
